FAERS Safety Report 8687955 (Version 2)
Quarter: 2012Q4

REPORT INFORMATION
  Report Type: 
  Country: NO (occurrence: NO)
  Receive Date: 20120727
  Receipt Date: 20121001
  Transmission Date: 20130627
  Serious: Yes (Other)
  Sender: FDA-Public Use
  Company Number: NO-BRISTOL-MYERS SQUIBB COMPANY-16774366

PATIENT
  Age: 24 Year
  Sex: Male

DRUGS (8)
  1. ETOPOSIDE [Suspect]
     Indication: HODGKIN^S DISEASE
     Dosage: 100 (Standard)
on days 1-3
     Route: 042
  2. BLEOMYCIN SULFATE [Suspect]
     Indication: HODGKIN^S DISEASE
     Dosage: Day 8
     Route: 042
  3. CYCLOPHOSPHAMIDE [Suspect]
     Indication: HODGKIN^S DISEASE
     Dosage: or 650mg/m2
     Route: 042
  4. ADRIAMYCIN [Suspect]
     Indication: HODGKIN^S DISEASE
     Dosage: 25mg/m2 or 35mg/m2
     Route: 042
  5. VINCRISTINE [Suspect]
     Indication: HODGKIN^S DISEASE
     Route: 042
  6. PROCARBAZINE [Suspect]
     Indication: HODGKIN^S DISEASE
     Route: 048
  7. PREDNISONE [Suspect]
     Indication: HODGKIN^S DISEASE
     Dosage: Dosage:D1-D14
     Route: 048
  8. BACTRIM [Concomitant]
     Indication: ANTIFUNGAL PROPHYLAXIS
     Route: 065

REACTIONS (1)
  - Osteonecrosis [Unknown]
